FAERS Safety Report 9314593 (Version 1)
Quarter: 2013Q2

REPORT INFORMATION
  Report Type: Spontaneous
  Country: JP (occurrence: JP)
  Receive Date: 20130529
  Receipt Date: 20130529
  Transmission Date: 20140414
  Serious: Yes (Death)
  Sender: FDA-Public Use
  Company Number: JP-ASTELLAS-2013JP006115

PATIENT
  Age: 2 Year
  Sex: Female

DRUGS (24)
  1. FUNGUARD [Suspect]
     Dosage: UNK
     Route: 065
     Dates: start: 201009, end: 201101
  2. FUNGUARD [Suspect]
     Dosage: UNK
     Route: 065
     Dates: start: 201104, end: 201105
  3. ETOPOSIDE [Concomitant]
     Dosage: 150 MG/M2, UNKNOWN/D
     Route: 065
     Dates: start: 201010, end: 201011
  4. ETOPOSIDE [Concomitant]
     Dosage: UNK
     Route: 065
     Dates: start: 201010, end: 201103
  5. CYTARABINE [Concomitant]
     Dosage: 200 MG/M2, UNKNOWN/D
     Route: 065
     Dates: start: 201010, end: 201011
  6. CYTARABINE [Concomitant]
     Dosage: 2 G/M2, UNKNOWN/D
     Route: 065
     Dates: start: 201012, end: 201012
  7. CYTARABINE [Concomitant]
     Dosage: UNK
     Route: 065
     Dates: start: 201010, end: 201103
  8. MITOXANTRONE [Concomitant]
     Dosage: 5 MG/M2, UNKNOWN/D
     Route: 065
     Dates: start: 201010, end: 201011
  9. MITOXANTRONE [Concomitant]
     Dosage: UNK
     Route: 065
     Dates: start: 201010, end: 201103
  10. FLUDARABINE [Concomitant]
     Dosage: 30 MG/M2, UNKNOWN/D
     Route: 065
     Dates: start: 201012, end: 201012
  11. G-CSF [Concomitant]
     Dosage: 5 UG/KG, UNKNOWN/D
     Route: 065
     Dates: start: 201012, end: 201012
  12. IDARUBICIN [Concomitant]
     Dosage: 12 MG/M2, UNKNOWN/D
     Route: 065
     Dates: start: 201012, end: 201012
  13. FLUCYTOSINE [Concomitant]
     Dosage: UNK
     Route: 065
     Dates: start: 201104, end: 201105
  14. AMPHOTERICIN B, LIPOSOME [Concomitant]
     Dosage: UNK
     Route: 065
     Dates: start: 201101, end: 201105
  15. VORICONAZOLE [Concomitant]
     Dosage: UNK
     Route: 065
     Dates: start: 201101, end: 201105
  16. ANTIHYPERTENSIVES [Concomitant]
     Indication: HYPERTENSION
     Dosage: UNK
     Route: 065
     Dates: start: 201102, end: 201105
  17. VP-16 [Concomitant]
     Dosage: UNK
     Route: 065
     Dates: start: 201102, end: 201104
  18. CYCLOSPORIN [Concomitant]
     Dosage: UNK
     Route: 065
     Dates: start: 201102, end: 201105
  19. PREDNISOLONE [Concomitant]
     Dosage: UNK
     Route: 065
     Dates: start: 201101, end: 201102
  20. PREDNISOLONE [Concomitant]
     Dosage: UNK
     Route: 065
     Dates: start: 201104, end: 201105
  21. DEXAMETHASONE [Concomitant]
     Dosage: UNK
     Route: 065
     Dates: start: 201102, end: 201104
  22. GEMTUZUMAB OZOGAMICIN [Concomitant]
     Dosage: UNK
     Route: 065
     Dates: start: 201102, end: 201102
  23. GEMTUZUMAB OZOGAMICIN [Concomitant]
     Dosage: UNK
     Route: 065
     Dates: start: 201104, end: 201104
  24. SORAFENIB [Concomitant]
     Indication: ACUTE MYELOID LEUKAEMIA
     Dosage: UNK
     Route: 065
     Dates: start: 201103, end: 201105

REACTIONS (2)
  - Drug ineffective [Unknown]
  - Bronchopulmonary aspergillosis [Fatal]
